FAERS Safety Report 12468096 (Version 1)
Quarter: 2016Q2

REPORT INFORMATION
  Report Type: Spontaneous
  Country: BR (occurrence: BR)
  Receive Date: 20160615
  Receipt Date: 20160615
  Transmission Date: 20160815
  Serious: Yes (Hospitalization)
  Sender: FDA-Public Use
  Company Number: BR-PFIZER INC-2016264206

PATIENT
  Age: 65 Year
  Sex: Female
  Weight: 84 kg

DRUGS (14)
  1. ADRIBLASTINA [Suspect]
     Active Substance: DOXORUBICIN HYDROCHLORIDE
     Indication: BREAST CANCER
     Dosage: 118 MG, UNK
     Route: 042
     Dates: start: 20160415
  2. ADRIBLASTINA [Suspect]
     Active Substance: DOXORUBICIN HYDROCHLORIDE
     Dosage: 18.8 MG, UNSPECIFIED FREQUENCY
     Route: 042
  3. LOSARTAN. [Concomitant]
     Active Substance: LOSARTAN
     Dosage: 50 MG, 1X DAILY
  4. GLIFAGE XR [Concomitant]
     Active Substance: METFORMIN HYDROCHLORIDE
     Dosage: 500 MG, 1X DAILY
  5. HYDROCHLOROTHIAZIDE. [Concomitant]
     Active Substance: HYDROCHLOROTHIAZIDE
     Dosage: 25 MG, 1X DAILY
  6. GENUXAL [Suspect]
     Active Substance: CYCLOPHOSPHAMIDE
     Indication: BREAST CANCER
     Dosage: 1188 MG, UNK
     Route: 042
     Dates: start: 20160415
  7. VEROTINA [Concomitant]
     Dosage: 20 MG, 1X DAILY
  8. GENUXAL [Suspect]
     Active Substance: CYCLOPHOSPHAMIDE
     Dosage: 950.4 UNK, UNK
  9. PURAN [Concomitant]
     Active Substance: LEVOTHYROXINE SODIUM
     Dosage: 88 UG, 1X DAILY
  10. PHARMATON /00124801/ [Concomitant]
  11. OMEPRAZOLE. [Concomitant]
     Active Substance: OMEPRAZOLE
     Dosage: 40 MG, 1X DAILY
  12. RIVOTRIL [Concomitant]
     Active Substance: CLONAZEPAM
     Dosage: 2 MG, 1X DAILY
  13. NEUTROFER [Concomitant]
     Active Substance: FERROUS BISGLYCINATE
  14. EPAREMA SOS [Concomitant]

REACTIONS (4)
  - Neutrophilia [Recovered/Resolved]
  - Leukopenia [Recovered/Resolved]
  - Cellulitis [Recovered/Resolved]
  - Pyrexia [Recovered/Resolved]

NARRATIVE: CASE EVENT DATE: 2016
